FAERS Safety Report 24343295 (Version 1)
Quarter: 2024Q3

REPORT INFORMATION
  Report Type: Report from Study
  Country: US (occurrence: US)
  Receive Date: 20240920
  Receipt Date: 20240920
  Transmission Date: 20241017
  Serious: Yes (Hospitalization, Other)
  Sender: PFIZER
  Company Number: US-PFIZER INC-PV202400122122

PATIENT
  Age: 16 Year
  Sex: Male

DRUGS (10)
  1. INOTUZUMAB OZOGAMICIN [Suspect]
     Active Substance: INOTUZUMAB OZOGAMICIN
     Indication: B-cell type acute leukaemia
     Dosage: CYCLE 1: 0.6 MG/M2 IV DAY 2 AND 0.3 MG/M2 DAYS 8 AND 15
     Route: 042
  2. INOTUZUMAB OZOGAMICIN [Suspect]
     Active Substance: INOTUZUMAB OZOGAMICIN
     Dosage: CYCLE 2 AND AFTER: 0.3 MG/M2 IV DAYS 2 AND 8
     Route: 042
  3. VINCRISTINE SULFATE [Suspect]
     Active Substance: VINCRISTINE SULFATE
     Indication: B-cell type acute leukaemia
     Dosage: 1.5 MG/M2 (MAX 2 MG/DOSE) IV DAYS 1 AND 8
     Route: 042
  4. METHOTREXATE SODIUM [Suspect]
     Active Substance: METHOTREXATE SODIUM
     Indication: B-cell type acute leukaemia
     Dosage: CIV OVER 24 HOURS (50 MG/M2 OVER 2 HOURS THEN 200 MG/M2 OVER 22 HOURS) DAY 1
     Route: 042
  5. CYTARABINE [Suspect]
     Active Substance: CYTARABINE
     Indication: B-cell type acute leukaemia
     Dosage: 0.5 GRAMS/M2 IV EVERY 12 HOURS DAYS 2 AND 3 (4 TOTAL DOSES)
     Route: 042
  6. DEXAMETHASONE [Suspect]
     Active Substance: DEXAMETHASONE
     Indication: B-cell type acute leukaemia
     Dosage: EVERY 12 HOURS (MAX 20 MG/DAY) DAYS 1-4 AND 11-14
     Route: 042
  7. CYCLOPHOSPHAMIDE [Suspect]
     Active Substance: CYCLOPHOSPHAMIDE
     Indication: B-cell type acute leukaemia
     Dosage: EVERY 12 HOURS DAYS 1-3 (6 TOTAL DOSES)
     Route: 042
  8. BUSULFAN [Suspect]
     Active Substance: BUSULFAN
     Indication: B-cell type acute leukaemia
     Dosage: UNK
  9. FLUDARABINE [Suspect]
     Active Substance: FLUDARABINE PHOSPHATE
     Indication: B-cell type acute leukaemia
  10. THIOTEPA [Suspect]
     Active Substance: THIOTEPA
     Indication: B-cell type acute leukaemia
     Dosage: UNK

REACTIONS (1)
  - Venoocclusive liver disease [Recovered/Resolved]
